FAERS Safety Report 17191313 (Version 1)
Quarter: 2019Q4

REPORT INFORMATION
  Report Type: Spontaneous
  Country: FR (occurrence: FR)
  Receive Date: 20191223
  Receipt Date: 20191223
  Transmission Date: 20200122
  Serious: Yes (Other)
  Sender: FDA-Public Use
  Company Number: NVSC2019FR075723

PATIENT
  Age: 13 Year
  Sex: Female

DRUGS (3)
  1. TEMOZOLOMIDE. [Suspect]
     Active Substance: TEMOZOLOMIDE
     Indication: BENIGN LUNG NEOPLASM
     Dosage: UNK UNK, QMO
     Route: 065
  2. TOPOTECAN [Suspect]
     Active Substance: TOPOTECAN HYDROCHLORIDE
     Indication: BENIGN LUNG NEOPLASM
     Dosage: UNK UNK, QMO
     Route: 065
  3. BEVACIZUMAB. [Suspect]
     Active Substance: BEVACIZUMAB
     Indication: BENIGN LUNG NEOPLASM
     Dosage: UNK UNK, Q2W
     Route: 042

REACTIONS (6)
  - Vomiting [Unknown]
  - Toxicity to various agents [Unknown]
  - Nausea [Unknown]
  - Renal disorder [Unknown]
  - Neutropenia [Unknown]
  - Product use in unapproved indication [Unknown]
